FAERS Safety Report 25243459 (Version 4)
Quarter: 2025Q2

REPORT INFORMATION
  Report Type: Spontaneous
  Country: BR (occurrence: BR)
  Receive Date: 20250428
  Receipt Date: 20250529
  Transmission Date: 20250716
  Serious: Yes (Other)
  Sender: CELLTRION
  Company Number: BR-CELLTRION INC.-2025BR012394

PATIENT

DRUGS (5)
  1. INFLIXIMAB [Suspect]
     Active Substance: INFLIXIMAB
     Indication: Crohn^s disease
     Route: 058
     Dates: start: 20250305
  2. INFLIXIMAB [Suspect]
     Active Substance: INFLIXIMAB
     Dosage: 120 MG EVERY FORTNIGHT (EVERY 15 DAYS)
     Route: 058
     Dates: start: 20250329
  3. INFLIXIMAB [Suspect]
     Active Substance: INFLIXIMAB
     Dosage: 120 MG EVERY FORTNIGHT (EVERY 15 DAYS)
     Route: 058
     Dates: start: 20250404
  4. INFLIXIMAB [Suspect]
     Active Substance: INFLIXIMAB
     Dosage: 120 MG EVERY FORTNIGHT (EVERY 15 DAYS)
     Route: 058
     Dates: start: 20250424
  5. INFLIXIMAB [Suspect]
     Active Substance: INFLIXIMAB
     Dosage: 120 MG EVERY FORTNIGHT (EVERY 15 DAYS)
     Route: 058
     Dates: start: 20250509

REACTIONS (5)
  - Crohn^s disease [Recovering/Resolving]
  - Device malfunction [Unknown]
  - Product leakage [Unknown]
  - Drug dose omission by device [Recovered/Resolved]
  - Intentional product use issue [Unknown]

NARRATIVE: CASE EVENT DATE: 20250419
